FAERS Safety Report 7157480-0 (Version None)
Quarter: 2010Q4

REPORT INFORMATION
  Report Type: 
  Country: None (occurrence: None)
  Receive Date: 20101214
  Receipt Date: 20101208
  Transmission Date: 20110411
  Serious: Yes (Other)
  Sender: FDA-Public Use
  Company Number: B0688999A

PATIENT
  Age: 25 Year
  Sex: Male
  Weight: 127 kg

DRUGS (2)
  1. ERYTHROMYCIN [Suspect]
     Route: 065
     Dates: start: 20101202
  2. METRONIDAZOLE [Concomitant]
     Route: 065
     Dates: start: 20101130

REACTIONS (1)
  - PETECHIAE [None]
